FAERS Safety Report 21595724 (Version 1)
Quarter: 2022Q4

REPORT INFORMATION
  Report Type: Report from Study
  Country: CA (occurrence: CA)
  Receive Date: 20221115
  Receipt Date: 20221115
  Transmission Date: 20230112
  Serious: Yes (Other)
  Sender: FDA-Public Use
  Company Number: None

PATIENT
  Sex: Female

DRUGS (4)
  1. AMLODIPINE [Suspect]
     Active Substance: AMLODIPINE BESYLATE
     Indication: Product used for unknown indication
  2. METOPROLOL TARTRATE [Suspect]
     Active Substance: METOPROLOL TARTRATE
     Indication: Product used for unknown indication
  3. PERINDOPRIL [Suspect]
     Active Substance: PERINDOPRIL
     Indication: Product used for unknown indication
  4. TYSABRI [Suspect]
     Active Substance: NATALIZUMAB
     Indication: Product used for unknown indication
     Dosage: SOLUTION INTRAVENOUS

REACTIONS (5)
  - Cardiac disorder [Unknown]
  - Expanded disability status scale score increased [Unknown]
  - Hypertension [Unknown]
  - Multiple sclerosis [Unknown]
  - Tachycardia [Unknown]
